FAERS Safety Report 5730397-1 (Version None)
Quarter: 2008Q2

REPORT INFORMATION
  Report Type: 
  Country: None (occurrence: None)
  Receive Date: 20080502
  Receipt Date: 20080423
  Transmission Date: 20081010
  Serious: Yes (Hospitalization)
  Sender: FDA-Public Use
  Company Number: 2007JP005061

PATIENT
  Age: 5 Year
  Sex: Male
  Weight: 24.5 kg

DRUGS (4)
  1. PROTOPIC [Suspect]
     Indication: DERMATITIS ATOPIC
     Dosage: 0.03 %, TOPICAL
     Route: 061
     Dates: start: 20050701
  2. ONON   (PRANLUKAST)DRY SYRUP [Concomitant]
  3. HIRUDOID  (HEPARINOID) OINTMENT [Concomitant]
  4. PROPETO     (WHITE SOFT PARAFFIN) OINTMENT [Concomitant]

REACTIONS (2)
  - B-CELL LYMPHOMA [None]
  - TONSILLAR HYPERTROPHY [None]
